FAERS Safety Report 7522980-8 (Version None)
Quarter: 2011Q2

REPORT INFORMATION
  Report Type: 
  Country: None (occurrence: None)
  Receive Date: 20110603
  Receipt Date: 20110520
  Transmission Date: 20111010
  Serious: Yes (Life-Threatening, Hospitalization)
  Sender: FDA-Public Use
  Company Number: JP-JNJFOC-20101100432

PATIENT
  Sex: Female
  Weight: 39 kg

DRUGS (7)
  1. REMICADE [Suspect]
     Route: 042
     Dates: start: 20080501
  2. REMICADE [Suspect]
     Route: 042
     Dates: start: 20030601
  3. REMICADE [Suspect]
     Indication: CROHN'S DISEASE
     Route: 042
     Dates: start: 20100802
  4. REMICADE [Suspect]
     Route: 042
  5. REMICADE [Suspect]
     Route: 042
     Dates: start: 20100415
  6. REMICADE [Suspect]
     Route: 042
  7. REMICADE [Suspect]
     Route: 042
     Dates: start: 20100610

REACTIONS (3)
  - ANAL ABSCESS [None]
  - OVARIAN CANCER STAGE III [None]
  - ILEAL STENOSIS [None]
